FAERS Safety Report 8662054 (Version 4)
Quarter: 2013Q1

REPORT INFORMATION
  Report Type: Report from Study
  Country: JP (occurrence: JP)
  Receive Date: 20120712
  Receipt Date: 20130328
  Transmission Date: 20140127
  Serious: Yes (Other)
  Sender: FDA-Public Use
  Company Number: JP-B.I. PHARMACEUTICALS,INC./RIDGEFIELD-2012-EU-03480GD

PATIENT
  Age: 71 Year
  Sex: Female

DRUGS (5)
  1. PRADAXA [Suspect]
     Indication: ATRIAL FIBRILLATION
     Dosage: 220 MG
     Route: 048
  2. HEPARIN [Suspect]
     Dosage: 5000 U
     Route: 042
  3. HEPARIN [Suspect]
     Dosage: 10000 U
     Route: 042
  4. PARIET [Concomitant]
     Route: 048
  5. PANALDINE [Concomitant]
     Route: 048

REACTIONS (1)
  - Embolic cerebral infarction [Not Recovered/Not Resolved]
